FAERS Safety Report 21927292 (Version 1)
Quarter: 2023Q1

REPORT INFORMATION
  Report Type: Spontaneous
  Country: IT (occurrence: IT)
  Receive Date: 20230130
  Receipt Date: 20230130
  Transmission Date: 20230418
  Serious: Yes (Hospitalization)
  Sender: FDA-Public Use
  Company Number: None

PATIENT
  Age: 13 Year
  Sex: Male
  Weight: 41 kg

DRUGS (5)
  1. IRINOTECAN [Suspect]
     Active Substance: IRINOTECAN
     Indication: Ewing^s sarcoma metastatic
     Dosage: 50 MG SQUARE METER FOR 5 DAYS?SOLUTION FOR INJECTION
     Route: 042
     Dates: start: 20221128, end: 20221202
  2. TEMOZOLOMIDE [Suspect]
     Active Substance: TEMOZOLOMIDE
     Indication: Ewing^s sarcoma metastatic
     Dosage: 100 MG PER SQUARE METER FOR 5 DAYS
     Route: 048
     Dates: start: 20221128, end: 20221202
  3. ONDANSETRON B. BRAUN [Concomitant]
     Indication: Prophylaxis of nausea and vomiting
     Dosage: SOLUTION FOR INJECTION
     Route: 042
     Dates: start: 20221128, end: 20221202
  4. DEXAMETHASONE [Concomitant]
     Active Substance: DEXAMETHASONE
     Indication: Prophylaxis of nausea and vomiting
     Dosage: SOLUTION FOR INJECTION
     Route: 042
     Dates: start: 20221128, end: 20221202
  5. CEFIXIME [Concomitant]
     Active Substance: CEFIXIME
     Indication: Thrombosis prophylaxis
     Dosage: 400 MG, TABLET
     Route: 048
     Dates: start: 20221125, end: 20221207

REACTIONS (4)
  - Electrolyte imbalance [Recovered/Resolved]
  - Diarrhoea [Recovered/Resolved]
  - Vomiting [Recovered/Resolved]
  - Nausea [Recovered/Resolved]

NARRATIVE: CASE EVENT DATE: 20221209
